FAERS Safety Report 11636631 (Version 1)
Quarter: 2015Q4

REPORT INFORMATION
  Report Type: Spontaneous
  Country: US (occurrence: US)
  Receive Date: 20151016
  Receipt Date: 20151016
  Transmission Date: 20160304
  Serious: Yes (Hospitalization, Other)
  Sender: FDA-Public Use
  Company Number: US-ASTRAZENECA-2010BM02074

PATIENT
  Age: 56 Year
  Sex: Female
  Weight: 111.6 kg

DRUGS (13)
  1. ACTOS [Concomitant]
     Active Substance: PIOGLITAZONE HYDROCHLORIDE
  2. BYETTA [Suspect]
     Active Substance: EXENATIDE
     Indication: TYPE 2 DIABETES MELLITUS
     Route: 058
     Dates: start: 2007
  3. MONOPRIL [Concomitant]
     Active Substance: FOSINOPRIL SODIUM
  4. GLYBURIDE. [Concomitant]
     Active Substance: GLYBURIDE
  5. METFORMIN [Concomitant]
     Active Substance: METFORMIN HYDROCHLORIDE
     Indication: DIABETES MELLITUS
  6. DIOVAN HCT [Concomitant]
     Active Substance: HYDROCHLOROTHIAZIDE\VALSARTAN
     Indication: BLOOD PRESSURE ABNORMAL
     Dosage: EVERY DAY
  7. HYDROCODONE [Concomitant]
     Active Substance: HYDROCODONE
     Indication: SWELLING
     Route: 048
     Dates: start: 200801
  8. DARVOCET [Concomitant]
     Active Substance: ACETAMINOPHEN\PROPOXYPHENE HYDROCHLORIDE
     Indication: SWELLING
     Dates: start: 2009
  9. GLIMEPIRIDE. [Concomitant]
     Active Substance: GLIMEPIRIDE
     Indication: DIABETES MELLITUS
  10. CELEBREX [Concomitant]
     Active Substance: CELECOXIB
     Indication: PAIN
     Route: 048
     Dates: start: 200801
  11. ZETIA [Concomitant]
     Active Substance: EZETIMIBE
  12. BYDUREON [Suspect]
     Active Substance: EXENATIDE
     Indication: TYPE 2 DIABETES MELLITUS
     Route: 058
  13. BYETTA [Suspect]
     Active Substance: EXENATIDE
     Indication: TYPE 2 DIABETES MELLITUS
     Dosage: DISPOSABLE DEVICE, 10 MCG PEN
     Route: 058

REACTIONS (12)
  - Urticaria [Unknown]
  - Ankle fracture [Recovering/Resolving]
  - Fall [Recovering/Resolving]
  - Back pain [Not Recovered/Not Resolved]
  - Blood glucose increased [Unknown]
  - Joint swelling [Unknown]
  - Muscle rupture [Recovering/Resolving]
  - Dysstasia [Not Recovered/Not Resolved]
  - Feeling hot [Not Recovered/Not Resolved]
  - Pain in extremity [Not Recovered/Not Resolved]
  - Peripheral swelling [Unknown]
  - Injection site mass [Unknown]

NARRATIVE: CASE EVENT DATE: 2007
